FAERS Safety Report 15904465 (Version 5)
Quarter: 2020Q4

REPORT INFORMATION
  Report Type: Report from Study
  Country: GB (occurrence: GB)
  Receive Date: 20190204
  Receipt Date: 20201130
  Transmission Date: 20210113
  Serious: Yes (Hospitalization, Other)
  Sender: FDA-Public Use
  Company Number: GB-ACCORD-105268

PATIENT
  Age: 50 Year
  Sex: Female

DRUGS (20)
  1. PERTUZUMAB. [Suspect]
     Active Substance: PERTUZUMAB
     Indication: HER2 POSITIVE BREAST CANCER
     Dosage: LOADING DOSE, LAST ADMINISTRATION: 20-JUN-2016
     Route: 042
     Dates: start: 20160620
  2. TRASTUZUMAB/EMTANSINE [Suspect]
     Active Substance: ADO-TRASTUZUMAB EMTANSINE
     Indication: HER2 POSITIVE BREAST CANCER
     Dosage: ALSO RECEIVED 220 MG IV ON 12-JAN-2017, 3 WEEKS INTERVAL?ALSO RECEIVED 651 MG IV (LOADING DOSE)
     Route: 042
     Dates: start: 20161123
  3. PIRITON [Concomitant]
     Active Substance: CHLORPHENIRAMINE MALEATE
     Dates: start: 20160914, end: 20161026
  4. FUCIDIN [Concomitant]
     Active Substance: FUSIDATE SODIUM
     Route: 061
     Dates: start: 20171123, end: 20171208
  5. FILGRASTIM [Concomitant]
     Active Substance: FILGRASTIM
     Route: 058
     Dates: start: 20161123, end: 20170209
  6. PERTUZUMAB. [Suspect]
     Active Substance: PERTUZUMAB
     Indication: PRODUCT USED FOR UNKNOWN INDICATION
     Dosage: MAINTENANCE DOSE
     Route: 042
     Dates: start: 20160714
  7. TRASTUZUMAB. [Suspect]
     Active Substance: TRASTUZUMAB
     Indication: HER2 POSITIVE BREAST CANCER
     Dosage: 651 MG RECEIVED ON 20-JUN-2016 TO 20-JUN-2016,LOADING DOSE
     Route: 042
     Dates: start: 20160714
  8. NOVORAPID [Concomitant]
     Active Substance: INSULIN ASPART
     Route: 030
  9. LEVEMIR [Concomitant]
     Active Substance: INSULIN DETEMIR
     Dosage: 50 UNIT
     Route: 030
  10. HYDROCORTISONE. [Concomitant]
     Active Substance: HYDROCORTISONE
     Route: 042
     Dates: start: 20160914, end: 20161024
  11. METOCLOPRAMIDE. [Concomitant]
     Active Substance: METOCLOPRAMIDE
     Indication: VOMITING
     Route: 048
     Dates: start: 20160621, end: 20161026
  12. VENTOLIN [Concomitant]
     Active Substance: ALBUTEROL SULFATE
  13. DOCETAXEL. [Suspect]
     Active Substance: DOCETAXEL
     Indication: HER2 POSITIVE BREAST CANCER
     Route: 042
     Dates: start: 20160621
  14. ENOXAPARIN [Concomitant]
     Active Substance: ENOXAPARIN
     Dosage: 150 MG IV RECEIVED ON 01-SEP-2016 TO 03-SEP-2016
     Route: 058
     Dates: start: 20160901, end: 20160903
  15. SEPTRIN [Concomitant]
     Active Substance: SULFAMETHOXAZOLE\TRIMETHOPRIM
     Route: 048
     Dates: start: 201612, end: 20161218
  16. CAPECITABINE. [Suspect]
     Active Substance: CAPECITABINE
     Indication: HER2 POSITIVE BREAST CANCER
     Route: 048
     Dates: start: 20160427, end: 20160525
  17. DAPSONE. [Concomitant]
     Active Substance: DAPSONE
     Route: 048
     Dates: start: 20161218
  18. LOPERAMIDE [Concomitant]
     Active Substance: LOPERAMIDE
     Route: 048
  19. TRASTUZUMAB/EMTANSINE [Suspect]
     Active Substance: ADO-TRASTUZUMAB EMTANSINE
     Indication: PRODUCT USED FOR UNKNOWN INDICATION
     Route: 042
     Dates: start: 20170112
  20. TRASTUZUMAB. [Suspect]
     Active Substance: TRASTUZUMAB
     Indication: HER2 POSITIVE BREAST CANCER
     Dosage: LAST ADMINISTRATION: 20-JUN-2016, LOADING DOSE
     Route: 042
     Dates: start: 20160620

REACTIONS (4)
  - Oropharyngeal pain [Recovered/Resolved]
  - Vomiting [Recovered/Resolved]
  - Neutropenic sepsis [Recovered/Resolved]
  - Cough [Recovered/Resolved]

NARRATIVE: CASE EVENT DATE: 20160901
